FAERS Safety Report 10660529 (Version 4)
Quarter: 2015Q2

REPORT INFORMATION
  Report Type: Spontaneous
  Country: US (occurrence: US)
  Receive Date: 20141217
  Receipt Date: 20150617
  Transmission Date: 20150821
  Serious: No
  Sender: FDA-Public Use
  Company Number: US-GLAXOSMITHKLINE-A1087308A

PATIENT

DRUGS (7)
  1. LORTAB [Concomitant]
     Active Substance: ACETAMINOPHEN\HYDROCODONE BITARTRATE
  2. MULTIVITAMINS [Concomitant]
     Active Substance: VITAMINS
  3. VOTRIENT [Suspect]
     Active Substance: PAZOPANIB HYDROCHLORIDE
     Indication: RENAL CANCER
     Dosage: 800 MG, QD
     Route: 048
     Dates: start: 20140811
  4. FISH OIL [Concomitant]
     Active Substance: FISH OIL
  5. XANAX [Concomitant]
     Active Substance: ALPRAZOLAM
  6. ADVIL [Concomitant]
     Active Substance: IBUPROFEN
  7. FLAXSEED [Concomitant]
     Active Substance: FLAX SEED

REACTIONS (4)
  - Aggression [Unknown]
  - Anxiety [Unknown]
  - Fatigue [Unknown]
  - Rash pruritic [Not Recovered/Not Resolved]
